FAERS Safety Report 8828016 (Version 1)
Quarter: 2012Q4

REPORT INFORMATION
  Report Type: Report from Study
  Country: RU (occurrence: RU)
  Receive Date: 20121008
  Receipt Date: 20121008
  Transmission Date: 20130627
  Serious: Yes (Hospitalization)
  Sender: FDA-Public Use
  Company Number: PHHY2012RU085945

PATIENT
  Age: 45 Year
  Sex: Female

DRUGS (1)
  1. IMATINIB [Suspect]
     Dosage: 400 mg, Daily
     Route: 048
     Dates: start: 20110504

REACTIONS (4)
  - Intervertebral disc protrusion [Unknown]
  - Nerve root compression [Unknown]
  - Sciatica [Unknown]
  - Paresis [Unknown]
